FAERS Safety Report 22276107 (Version 1)
Quarter: 2023Q2

REPORT INFORMATION
  Report Type: Report from Study
  Country: CA (occurrence: CA)
  Receive Date: 20230502
  Receipt Date: 20230502
  Transmission Date: 20230722
  Serious: Yes (Other)
  Sender: FDA-Public Use
  Company Number: CA-Vifor (International) Inc.-VIT-2023-03067

PATIENT
  Sex: Male

DRUGS (1)
  1. AVACOPAN [Suspect]
     Active Substance: AVACOPAN
     Indication: Product used for unknown indication
     Dosage: THREE CAPSULES (30 MILLIGRAMS) TWICE A DAY WITH FOOD
     Route: 048
     Dates: end: 202304

REACTIONS (1)
  - Adverse event [Unknown]
